FAERS Safety Report 7978088-0 (Version None)
Quarter: 2011Q4

REPORT INFORMATION
  Report Type: 
  Country: None (occurrence: None)
  Receive Date: 20111212
  Receipt Date: 20111212
  Transmission Date: 20120403
  Serious: Yes (Death)
  Sender: FDA-Public Use
  Company Number: None

PATIENT
  Age: 68 Year
  Sex: Male
  Weight: 54.8 kg

DRUGS (5)
  1. OXYCODONE HCL [Concomitant]
  2. RITALIN (METHYLPHENIDATE HCL) [Concomitant]
  3. BEVACIZUMAB [Suspect]
  4. NAPROSYN [Concomitant]
  5. LACTULOSE [Concomitant]

REACTIONS (2)
  - NEOPLASM MALIGNANT [None]
  - METASTATIC RENAL CELL CARCINOMA [None]
